FAERS Safety Report 14248059 (Version 1)
Quarter: 2017Q4

REPORT INFORMATION
  Report Type: Spontaneous
  Country: US (occurrence: US)
  Receive Date: 20171204
  Receipt Date: 20171204
  Transmission Date: 20180321
  Serious: No
  Sender: FDA-Public Use
  Company Number: US-009507513-1711USA003146

PATIENT
  Sex: Male

DRUGS (1)
  1. ASMANEX [Suspect]
     Active Substance: MOMETASONE FUROATE
     Indication: ASTHMA
     Dosage: 1 INHALATION ONCE A DAY
     Route: 055
     Dates: start: 2016

REACTIONS (3)
  - Product container issue [Unknown]
  - Dysphonia [Not Recovered/Not Resolved]
  - Drug dose omission [Unknown]
